FAERS Safety Report 20258631 (Version 1)
Quarter: 2021Q4

REPORT INFORMATION
  Report Type: Spontaneous
  Country: HK (occurrence: HK)
  Receive Date: 20211230
  Receipt Date: 20211230
  Transmission Date: 20220303
  Serious: Yes (Other)
  Sender: FDA-Public Use
  Company Number: HK-BAYER-2021A276023

PATIENT
  Age: 36 Year
  Sex: Female

DRUGS (1)
  1. YAZ [Suspect]
     Active Substance: DROSPIRENONE\ETHINYL ESTRADIOL
     Dosage: UNK
     Route: 048
     Dates: start: 2018, end: 20211227

REACTIONS (5)
  - Dyspnoea at rest [None]
  - Dizziness [None]
  - Headache [None]
  - Hypertension [None]
  - Abnormal withdrawal bleeding [None]

NARRATIVE: CASE EVENT DATE: 20180101
